FAERS Safety Report 4288459-4 (Version None)
Quarter: 2004Q1

REPORT INFORMATION
  Report Type: 
  Country: None (occurrence: None)
  Receive Date: 20040205
  Receipt Date: 20040115
  Transmission Date: 20041129
  Serious: Yes (Hospitalization, Other)
  Sender: FDA-Public Use
  Company Number: USA040156720

PATIENT
  Age: 72 Year
  Sex: Female

DRUGS (2)
  1. HUMULIN R [Suspect]
  2. NPH INSULIN [Suspect]

REACTIONS (4)
  - ANGIOPLASTY [None]
  - PAIN [None]
  - PAROSMIA [None]
  - PHARMACEUTICAL PRODUCT COMPLAINT [None]
